FAERS Safety Report 4495642-1 (Version None)
Quarter: 2004Q4

REPORT INFORMATION
  Report Type: 
  Country: None (occurrence: None)
  Receive Date: 20041108
  Receipt Date: 20040917
  Transmission Date: 20050328
  Serious: Yes (Other)
  Sender: FDA-Public Use
  Company Number: US-MERCK-0411USA00131

PATIENT
  Age: 60 Year
  Sex: Female
  Weight: 45 kg

DRUGS (4)
  1. TIMOPTIC [Suspect]
     Indication: GLAUCOMA
     Route: 047
     Dates: start: 19980201, end: 19980101
  2. ADVIL [Concomitant]
     Indication: HEADACHE
     Route: 048
  3. IMITREX [Concomitant]
     Indication: HEADACHE
     Route: 048
  4. FOSAMAX [Concomitant]
     Indication: OSTEOPOROSIS
     Route: 048

REACTIONS (1)
  - DERMATITIS CONTACT [None]
